FAERS Safety Report 6876880-7 (Version None)
Quarter: 2010Q2

REPORT INFORMATION
  Report Type: 
  Country: None (occurrence: None)
  Receive Date: 20100616
  Receipt Date: 20100326
  Transmission Date: 20101027
  Serious: No
  Sender: FDA-Public Use
  Company Number: DSA_42859_2010

PATIENT
  Sex: Female

DRUGS (6)
  1. XENAZINE [Suspect]
     Indication: DRUG USE FOR UNKNOWN INDICATION
     Dosage: 25 MG TID ORAL
     Route: 048
     Dates: start: 20100323
  2. PERCOCET [Concomitant]
  3. CYMBALTA [Concomitant]
  4. PERIACTIN [Concomitant]
  5. KAPIDEX [Concomitant]
  6. FOSAMAX [Concomitant]

REACTIONS (1)
  - SOMNOLENCE [None]
